FAERS Safety Report 12294959 (Version 3)
Quarter: 2016Q2

REPORT INFORMATION
  Report Type: Report from Study
  Country: US (occurrence: US)
  Receive Date: 20160422
  Receipt Date: 20160505
  Transmission Date: 20160815
  Serious: Yes (Death, Hospitalization)
  Sender: FDA-Public Use
  Company Number: US-ROCHE-1744690

PATIENT
  Age: 63 Year
  Sex: Female
  Weight: 41 kg

DRUGS (4)
  1. VEMURAFENIB [Suspect]
     Active Substance: VEMURAFENIB
     Indication: COLORECTAL CANCER METASTATIC
     Route: 048
     Dates: start: 20160331, end: 20160413
  2. IRINOTECAN [Suspect]
     Active Substance: IRINOTECAN
     Indication: COLORECTAL CANCER METASTATIC
     Dosage: TOTAL DOSE 240 MG
     Route: 042
     Dates: start: 20160331, end: 20160331
  3. IRINOTECAN [Suspect]
     Active Substance: IRINOTECAN
     Route: 065
     Dates: start: 201601, end: 201602
  4. CETUXIMAB [Suspect]
     Active Substance: CETUXIMAB
     Indication: COLORECTAL CANCER METASTATIC
     Dosage: TOTAL DOSE 680 MG
     Route: 042
     Dates: start: 20160331, end: 20160331

REACTIONS (4)
  - Dyspnoea [Unknown]
  - Death [Fatal]
  - Ascites [Unknown]
  - Hyponatraemia [Unknown]

NARRATIVE: CASE EVENT DATE: 20160413
